FAERS Safety Report 4869146-8 (Version None)
Quarter: 2005Q4

REPORT INFORMATION
  Report Type: 
  Country: None (occurrence: None)
  Receive Date: 20051230
  Receipt Date: 20051221
  Transmission Date: 20060501
  Serious: Yes (Hospitalization)
  Sender: FDA-Public Use
  Company Number: IL-NOVOPROD-249533

PATIENT
  Age: 14 Year
  Sex: Male
  Weight: 46 kg

DRUGS (2)
  1. LEVEMIR [Suspect]
     Indication: DIABETES MELLITUS
     Dosage: 14 IU, QD
     Dates: start: 20051215
  2. HUMALOG [Concomitant]
     Indication: DIABETES MELLITUS
     Dates: start: 20050501

REACTIONS (1)
  - HEPATITIS [None]
